FAERS Safety Report 6885932-7 (Version None)
Quarter: 2010Q3

REPORT INFORMATION
  Report Type: 
  Country: None (occurrence: None)
  Receive Date: 20100729
  Receipt Date: 20081124
  Transmission Date: 20110219
  Serious: No
  Sender: FDA-Public Use
  Company Number: US-PFIZER INC-2008086017

PATIENT
  Sex: Male
  Weight: 84 kg

DRUGS (2)
  1. CELEBREX [Suspect]
     Indication: BACK PAIN
     Dates: start: 20080101, end: 20080101
  2. CELEBREX [Suspect]
     Indication: BACK INJURY

REACTIONS (2)
  - BACK PAIN [None]
  - HEADACHE [None]
